FAERS Safety Report 11030869 (Version 1)
Quarter: 2015Q2

REPORT INFORMATION
  Report Type: Spontaneous
  Country: CA (occurrence: CA)
  Receive Date: 20150415
  Receipt Date: 20150415
  Transmission Date: 20150821
  Serious: Yes (Other)
  Sender: FDA-Public Use
  Company Number: CA-TEVA-553596USA

PATIENT
  Age: 52 Year
  Sex: Male

DRUGS (2)
  1. BETAMETHASONE [Suspect]
     Active Substance: BETAMETHASONE
     Indication: ECZEMA
     Route: 061
  2. TACROLIMUS. [Concomitant]
     Active Substance: TACROLIMUS
     Indication: ECZEMA

REACTIONS (3)
  - Atrophy [Unknown]
  - Skin atrophy [Unknown]
  - Mycosis fungoides [Unknown]
